FAERS Safety Report 19847442 (Version 1)
Quarter: 2021Q3

REPORT INFORMATION
  Report Type: Spontaneous
  Country: JP (occurrence: JP)
  Receive Date: 20210917
  Receipt Date: 20210917
  Transmission Date: 20211014
  Serious: Yes (Hospitalization)
  Sender: FDA-Public Use
  Company Number: JP-PFIZER INC-202101178656

PATIENT
  Age: 58 Year
  Sex: Male

DRUGS (3)
  1. DEPAS [ETIZOLAM] [Concomitant]
     Active Substance: ETIZOLAM
     Dosage: UNK
     Route: 048
  2. DEPAKENE [VALPROATE SODIUM] [Concomitant]
     Active Substance: VALPROATE SODIUM
     Dosage: UNK
     Route: 048
  3. SOLANAX [Suspect]
     Active Substance: ALPRAZOLAM
     Indication: DEPRESSION
     Dosage: UNK
     Route: 048

REACTIONS (3)
  - Constipation [Unknown]
  - Abdominal distension [Unknown]
  - Colitis [Unknown]

NARRATIVE: CASE EVENT DATE: 202103
